FAERS Safety Report 24905596 (Version 1)
Quarter: 2025Q1

REPORT INFORMATION
  Report Type: Report from Study
  Country: FR (occurrence: FR)
  Receive Date: 20250130
  Receipt Date: 20250130
  Transmission Date: 20250408
  Serious: Yes (Other)
  Sender: ALNYLAM PHARMACEUTICALS
  Company Number: FR-ALNYLAM PHARMACEUTICALS, INC.-ALN-2024-004340

PATIENT

DRUGS (1)
  1. ONPATTRO [Suspect]
     Active Substance: PATISIRAN SODIUM
     Indication: Product used for unknown indication
     Route: 065

REACTIONS (7)
  - Skin ulcer [Unknown]
  - Gait disturbance [Unknown]
  - Osteitis [Unknown]
  - Staphylococcal infection [Unknown]
  - Fatigue [Unknown]
  - Pain in extremity [Unknown]
  - Balance disorder [Unknown]
